FAERS Safety Report 19154108 (Version 2)
Quarter: 2021Q2

REPORT INFORMATION
  Report Type: Other
  Country: NL (occurrence: NL)
  Receive Date: 20210419
  Receipt Date: 20210429
  Transmission Date: 20210717
  Serious: Yes (Other)
  Sender: FDA-Public Use
  Company Number: NL-NOVA LABORATORIES LIMITED-2109473

PATIENT
  Age: 60 Year
  Sex: Female

DRUGS (11)
  1. MYCOPHENOLATE MOFETIL ACCORD [Suspect]
     Active Substance: MYCOPHENOLATE MOFETIL
     Dates: start: 2005
  2. PREDNISOLONE 21?(DISODIUM ORTHOPHOSPHATE) [Suspect]
     Active Substance: PREDNISOLONE SODIUM PHOSPHATE
     Dates: start: 2005
  3. MYCOPHENOLATE MOFETIL ACCORD [Suspect]
     Active Substance: MYCOPHENOLATE MOFETIL
  4. INFLECTRA [Suspect]
     Active Substance: INFLIXIMAB-DYYB
     Dates: start: 201811
  5. ENVARSUS PA (TACROLIMUS) [Suspect]
     Active Substance: TACROLIMUS
     Dates: start: 2018
  6. ENVARSUS PA (TACROLIMUS) [Suspect]
     Active Substance: TACROLIMUS
  7. INFLECTRA [Suspect]
     Active Substance: INFLIXIMAB-DYYB
     Dates: start: 201809
  8. INFLECTRA [Suspect]
     Active Substance: INFLIXIMAB-DYYB
     Dates: start: 201901
  9. PREDNISOLONE 21?(DISODIUM ORTHOPHOSPHATE) [Suspect]
     Active Substance: PREDNISOLONE SODIUM PHOSPHATE
  10. AZATHIOPRINE. [Suspect]
     Active Substance: AZATHIOPRINE
  11. PURIXAN [Suspect]
     Active Substance: MERCAPTOPURINE
     Indication: CROHN^S DISEASE

REACTIONS (2)
  - Histoplasmosis disseminated [Unknown]
  - Off label use [Unknown]
